FAERS Safety Report 5191571-9 (Version None)
Quarter: 2006Q4

REPORT INFORMATION
  Report Type: 
  Country: None (occurrence: None)
  Receive Date: 20061219
  Receipt Date: 20061204
  Transmission Date: 20070319
  Serious: Yes (Other)
  Sender: FDA-Public Use
  Company Number: US-2006-026394

PATIENT
  Age: 61 Year
  Sex: Female
  Weight: 73 kg

DRUGS (13)
  1. BETASERON [Suspect]
     Indication: PRIMARY PROGRESSIVE MULTIPLE SCLEROSIS
     Dosage: 8 MIU, EVERY 2D, SUBCUTANEOUS
     Route: 058
     Dates: start: 20060610
  2. IBUPROFEN [Concomitant]
  3. LEXAPRO [Concomitant]
  4. AMBIEN [Concomitant]
  5. DIOVAN [Concomitant]
  6. AVANDIA [Concomitant]
  7. NEXIUM [Concomitant]
  8. MOBIC [Concomitant]
  9. REQUIP [Concomitant]
  10. PREMARIN [Concomitant]
  11. ESTRATEST (METHYLTESTERONE, ESTROGENS ESTERIFIED) [Concomitant]
  12. XANAX [Concomitant]
  13. VALTREX [Concomitant]

REACTIONS (5)
  - ASPARTATE AMINOTRANSFERASE INCREASED [None]
  - INJECTION SITE BRUISING [None]
  - INJECTION SITE ERYTHEMA [None]
  - JAUNDICE [None]
  - WRONG TECHNIQUE IN DRUG USAGE PROCESS [None]
